FAERS Safety Report 8235086-X (Version None)
Quarter: 2012Q1

REPORT INFORMATION
  Report Type: 
  Country: None (occurrence: None)
  Receive Date: 20120326
  Receipt Date: 20120321
  Transmission Date: 20120608
  Serious: Yes (Other)
  Sender: FDA-Public Use
  Company Number: CH-PFIZER INC-2012064007

PATIENT
  Age: 76 Year
  Sex: Female

DRUGS (1)
  1. XALATAN [Suspect]
     Indication: GLAUCOMA
     Dosage: 1 GTT IN EACH EYE / 1XDAY (IN THE EVENING)
     Route: 047
     Dates: start: 20101019

REACTIONS (3)
  - BRONCHITIS [None]
  - ASTHMA [None]
  - PHARYNGEAL OEDEMA [None]
